FAERS Safety Report 11054486 (Version 1)
Quarter: 2015Q2

REPORT INFORMATION
  Report Type: Spontaneous
  Country: US (occurrence: None)
  Receive Date: 20150421
  Receipt Date: 20150421
  Transmission Date: 20150821
  Serious: Yes (Hospitalization)
  Sender: FDA-Public Use
  Company Number: None

PATIENT
  Age: 76 Year
  Sex: Female
  Weight: 68.95 kg

DRUGS (14)
  1. ASPIRIN. [Concomitant]
     Active Substance: ASPIRIN
  2. VENLAFAXINE [Concomitant]
     Active Substance: VENLAFAXINE HYDROCHLORIDE
  3. ATENOLOL. [Concomitant]
     Active Substance: ATENOLOL
  4. SAM^S ADULTS 50+ MULTIVITAMIN [Concomitant]
  5. AMLODIPINE BESYLATE. [Concomitant]
     Active Substance: AMLODIPINE BESYLATE
  6. FOLIC ACID. [Concomitant]
     Active Substance: FOLIC ACID
  7. GLUCOSAMINE [Concomitant]
     Active Substance: GLUCOSAMINE
  8. NIACIN. [Concomitant]
     Active Substance: NIACIN
  9. VIT E. [Concomitant]
  10. LISINOPRIL. [Suspect]
     Active Substance: LISINOPRIL
     Indication: BLOOD PRESSURE
     Dosage: 1 PILL A DAY MOUTH
     Route: 048
     Dates: start: 20140512, end: 20150209
  11. ATORVASTATIN [Concomitant]
     Active Substance: ATORVASTATIN
  12. CRANBERRY. [Concomitant]
     Active Substance: CRANBERRY
  13. ROPINIROLE. [Concomitant]
     Active Substance: ROPINIROLE
  14. FLAXSEED [Concomitant]
     Active Substance: FLAX SEED

REACTIONS (4)
  - Throat tightness [None]
  - Dyspnoea [None]
  - Swelling face [None]
  - Angioedema [None]

NARRATIVE: CASE EVENT DATE: 20150209
